FAERS Safety Report 19608425 (Version 2)
Quarter: 2021Q3

REPORT INFORMATION
  Report Type: Spontaneous
  Country: PT (occurrence: PT)
  Receive Date: 20210726
  Receipt Date: 20210828
  Transmission Date: 20211014
  Serious: Yes (Hospitalization, Congenital Anomaly, Other)
  Sender: FDA-Public Use
  Company Number: PT-LUPIN PHARMACEUTICALS INC.-2021-12777

PATIENT
  Age: 1 Hour
  Sex: Male

DRUGS (2)
  1. PARACETAMOL [Interacting]
     Active Substance: ACETAMINOPHEN
     Indication: BACK PAIN
     Dosage: UNK (THE MOTHER OF THE NEONATE HAD RECEIVED 5DAY COURSE OF PARACETAMOL AT 35WEEKS OF GESTATIONAL AGE
     Route: 064
  2. DICLOFENAC SODIUM. [Suspect]
     Active Substance: DICLOFENAC SODIUM
     Indication: BACK PAIN
     Dosage: UNK UNK, SINGLE (THE MOTHER OF THE NEONATE HAD RECEIVED A SINGLE DOSE OF IM DICLOFENAC AT 35WEEKS OF
     Route: 064

REACTIONS (8)
  - Ductus arteriosus premature closure [Recovered/Resolved]
  - Drug interaction [Unknown]
  - Right-to-left cardiac shunt [Recovered/Resolved]
  - Right ventricular hypertrophy [Recovered/Resolved]
  - Atrial septal defect [Recovered/Resolved]
  - Pulmonary hypertension [Recovered/Resolved]
  - Foetal exposure during pregnancy [Unknown]
  - Tricuspid valve incompetence [Recovered/Resolved]
